FAERS Safety Report 13892614 (Version 9)
Quarter: 2018Q2

REPORT INFORMATION
  Report Type: Spontaneous
  Country: JP (occurrence: JP)
  Receive Date: 20170822
  Receipt Date: 20180510
  Transmission Date: 20180711
  Serious: Yes (Life-Threatening, Hospitalization, Other)
  Sender: FDA-Public Use
  Company Number: PHJP2016JP037795

PATIENT
  Age: 47 Year
  Sex: Male
  Weight: 70.7 kg

DRUGS (6)
  1. GILENYA [Suspect]
     Active Substance: FINGOLIMOD HYDROCHLORIDE
     Indication: MULTIPLE SCLEROSIS
     Dosage: 0.5 MG, QD
     Route: 048
     Dates: start: 20130424, end: 20161224
  2. UBRETID [Concomitant]
     Active Substance: DISTIGMINE BROMIDE
     Indication: PRODUCT USED FOR UNKNOWN INDICATION
     Dosage: 5 MG, QD
     Route: 048
  3. PURSENNID [Concomitant]
     Active Substance: SENNOSIDES A AND B
     Indication: PRODUCT USED FOR UNKNOWN INDICATION
     Dosage: 12 MG, UNK
     Route: 048
  4. PREDNISOLONE. [Concomitant]
     Active Substance: PREDNISOLONE
     Indication: PRODUCT USED FOR UNKNOWN INDICATION
     Dosage: 50 MG/DAY, -5 MG/DAY
     Route: 048
     Dates: start: 20170201
  5. HARNAL [Concomitant]
     Active Substance: TAMSULOSIN HYDROCHLORIDE
     Indication: PRODUCT USED FOR UNKNOWN INDICATION
     Dosage: 0.1 MG, QD
     Route: 048
  6. AZILVA [Concomitant]
     Active Substance: AZILSARTAN KAMEDOXOMIL
     Indication: PRODUCT USED FOR UNKNOWN INDICATION
     Dosage: 10 MG, QD
     Route: 048

REACTIONS (17)
  - Progressive multifocal leukoencephalopathy [Recovered/Resolved with Sequelae]
  - Seizure [Recovering/Resolving]
  - Aphasia [Unknown]
  - Brain stem syndrome [Unknown]
  - Immune reconstitution inflammatory syndrome [Recovered/Resolved]
  - Grip strength decreased [Unknown]
  - Secondary progressive multiple sclerosis [Unknown]
  - Paralysis [Recovering/Resolving]
  - Encephalitis autoimmune [Unknown]
  - Demyelination [Recovered/Resolved]
  - Cerebral disorder [Unknown]
  - Strabismus [Unknown]
  - Oedema [Recovered/Resolved]
  - Incoherent [Unknown]
  - Ataxia [Recovering/Resolving]
  - JC polyomavirus test positive [Recovered/Resolved]
  - Cognitive disorder [Recovering/Resolving]

NARRATIVE: CASE EVENT DATE: 201612
